FAERS Safety Report 24703102 (Version 1)
Quarter: 2024Q4

REPORT INFORMATION
  Report Type: Report from Study
  Country: CN (occurrence: CN)
  Receive Date: 20241205
  Receipt Date: 20241205
  Transmission Date: 20250115
  Serious: Yes (Other)
  Sender: PFIZER
  Company Number: CN-TAKEDA-2023TUS011735

PATIENT
  Age: 64 Year
  Sex: Female
  Weight: 53 kg

DRUGS (6)
  1. ADCETRIS [Suspect]
     Active Substance: BRENTUXIMAB VEDOTIN
     Indication: Non-Hodgkin^s lymphoma
     Dosage: 95.4 MILLIGRAM, Q3WEEKS
     Route: 041
     Dates: start: 20221118
  2. ADCETRIS [Suspect]
     Active Substance: BRENTUXIMAB VEDOTIN
     Dosage: 93.6 MILLIGRAM, Q3WEEKS
     Route: 041
     Dates: start: 20221210
  3. ADCETRIS [Suspect]
     Active Substance: BRENTUXIMAB VEDOTIN
     Dosage: 95.4 MILLIGRAM, Q8WEEKS
     Route: 041
     Dates: start: 20230128
  4. ADCETRIS [Suspect]
     Active Substance: BRENTUXIMAB VEDOTIN
     Dosage: 50 MILLIGRAM, 4/WEEK
     Route: 041
     Dates: start: 20230226
  5. ADCETRIS [Suspect]
     Active Substance: BRENTUXIMAB VEDOTIN
     Dosage: 83.7 MILLIGRAM, 3/WEEK
     Route: 041
     Dates: start: 20230319
  6. ADCETRIS [Suspect]
     Active Substance: BRENTUXIMAB VEDOTIN
     Dosage: 81.9 MILLIGRAM, 3/WEEK
     Route: 041
     Dates: start: 20230411

REACTIONS (3)
  - Myelosuppression [Recovered/Resolved]
  - Hyponatraemia [Not Recovered/Not Resolved]
  - Off label use [Recovered/Resolved]

NARRATIVE: CASE EVENT DATE: 20221118
